FAERS Safety Report 19482035 (Version 1)
Quarter: 2021Q2

REPORT INFORMATION
  Report Type: Spontaneous
  Country: US (occurrence: US)
  Receive Date: 20210630
  Receipt Date: 20210630
  Transmission Date: 20210717
  Serious: Yes (Hospitalization, Other)
  Sender: FDA-Public Use
  Company Number: None

PATIENT

DRUGS (12)
  1. CALCIUM [Concomitant]
     Active Substance: CALCIUM
  2. BETA PACE [Concomitant]
  3. ASPIRIN. [Concomitant]
     Active Substance: ASPIRIN
  4. OCUVITE EYE VITAMIN + MINERAL [Concomitant]
  5. LOSARTAN. [Concomitant]
     Active Substance: LOSARTAN
  6. HYDROMORPHONE 1 MG/ML SOLN [Suspect]
     Active Substance: HYDROMORPHONE
  7. CORTIA [Concomitant]
  8. IRON [Concomitant]
     Active Substance: IRON
  9. ONDANSETRON 2 MG/ML SOLN [Suspect]
     Active Substance: ONDANSETRON
     Indication: HYPERTENSION
     Dates: start: 20201217
  10. CLONIDINE. [Concomitant]
     Active Substance: CLONIDINE
  11. VITAMIN D3 [Concomitant]
     Active Substance: CHOLECALCIFEROL
  12. LATANPOST [Concomitant]

REACTIONS (7)
  - Adverse drug reaction [None]
  - Speech disorder [None]
  - Fall [None]
  - Respiratory disorder [None]
  - Amnesia [None]
  - Pelvic fracture [None]
  - Dysphagia [None]

NARRATIVE: CASE EVENT DATE: 20201217
